FAERS Safety Report 5690524-1 (Version None)
Quarter: 2008Q2

REPORT INFORMATION
  Report Type: 
  Country: None (occurrence: None)
  Receive Date: 20080401
  Receipt Date: 20041005
  Transmission Date: 20081010
  Serious: Yes (Death, Other)
  Sender: FDA-Public Use
  Company Number: US-ROCHE-376857

PATIENT
  Age: 41 Year
  Sex: Female
  Weight: 90.7 kg

DRUGS (2)
  1. KLONOPIN [Suspect]
     Route: 048
  2. CLONAZEPAM [Suspect]
     Route: 054
     Dates: start: 20021106, end: 20021118

REACTIONS (4)
  - ANXIETY [None]
  - CONVULSION [None]
  - DEATH [None]
  - RESTLESSNESS [None]
